FAERS Safety Report 9123146 (Version 1)
Quarter: 2013Q1

REPORT INFORMATION
  Report Type: Spontaneous
  Country: US (occurrence: US)
  Receive Date: 20130227
  Receipt Date: 20130227
  Transmission Date: 20140127
  Serious: Yes (Other)
  Sender: FDA-Public Use
  Company Number: US-PFIZER INC-2013066440

PATIENT
  Sex: 0

DRUGS (2)
  1. CHANTIX [Suspect]
     Indication: SMOKING CESSATION THERAPY
     Dosage: UNK
  2. CHANTIX [Suspect]
     Dosage: UNK
     Dates: start: 201212

REACTIONS (6)
  - Aggression [Unknown]
  - Tension [Unknown]
  - Fear [Unknown]
  - Anxiety [Unknown]
  - Nausea [Unknown]
  - Insomnia [Unknown]
